FAERS Safety Report 4465749-3 (Version None)
Quarter: 2004Q3

REPORT INFORMATION
  Report Type: 
  Country: None (occurrence: None)
  Receive Date: 20040929
  Receipt Date: 20040929
  Transmission Date: 20050211
  Serious: Yes (Other)
  Sender: FDA-Public Use
  Company Number: None

PATIENT
  Sex: Male
  Weight: 87.5442 kg

DRUGS (2)
  1. ZOLOFT [Suspect]
     Indication: ANXIETY
     Dosage: 50 MG 1 PER DAY ORAL
     Route: 048
     Dates: start: 20040923, end: 20040928
  2. ZOLOFT [Suspect]
     Indication: DEPRESSION
     Dosage: 50 MG 1 PER DAY ORAL
     Route: 048
     Dates: start: 20040923, end: 20040928

REACTIONS (6)
  - CONDITION AGGRAVATED [None]
  - DIARRHOEA [None]
  - DIZZINESS [None]
  - INSOMNIA [None]
  - MUSCLE TWITCHING [None]
  - PANIC ATTACK [None]
